FAERS Safety Report 16115081 (Version 1)
Quarter: 2019Q1

REPORT INFORMATION
  Report Type: Spontaneous
  Country: US (occurrence: US)
  Receive Date: 20190325
  Receipt Date: 20190325
  Transmission Date: 20190418
  Serious: No
  Sender: FDA-Public Use
  Company Number: US-SMITH AND NEPHEW, INC-2018SMT00077

PATIENT
  Age: 82 Year
  Sex: Female
  Weight: 49.89 kg

DRUGS (7)
  1. METOPROLOL. [Concomitant]
     Active Substance: METOPROLOL
  2. PROBIOTIC [Concomitant]
     Active Substance: PROBIOTICS NOS
  3. CORTISONE [Concomitant]
     Active Substance: CORTISONE\HYDROCORTISONE
  4. COLLAGENASE SANTYL [Suspect]
     Active Substance: COLLAGENASE CLOSTRIDIUM HISTOLYTICUM
     Indication: ULCER
     Route: 061
     Dates: start: 201801
  5. CALCIUM [Concomitant]
     Active Substance: CALCIUM
  6. IRON [Concomitant]
     Active Substance: IRON
     Dates: start: 201711
  7. APRISO [Concomitant]
     Active Substance: MESALAMINE
     Dates: start: 201801

REACTIONS (11)
  - Wound complication [Not Recovered/Not Resolved]
  - Application site erythema [Not Recovered/Not Resolved]
  - Fatigue [Not Recovered/Not Resolved]
  - Application site discolouration [Not Recovered/Not Resolved]
  - Drug effect decreased [Not Recovered/Not Resolved]
  - Hypersensitivity [Unknown]
  - Pain in extremity [Not Recovered/Not Resolved]
  - Application site pain [Not Recovered/Not Resolved]
  - Weight decreased [Not Recovered/Not Resolved]
  - Pain of skin [Not Recovered/Not Resolved]
  - Insomnia [Not Recovered/Not Resolved]

NARRATIVE: CASE EVENT DATE: 2018
